FAERS Safety Report 9943573 (Version 1)
Quarter: 2014Q1

REPORT INFORMATION
  Report Type: Spontaneous
  Country: FR (occurrence: FR)
  Receive Date: 20140303
  Receipt Date: 20140303
  Transmission Date: 20141002
  Serious: Yes (Life-Threatening, Hospitalization)
  Sender: FDA-Public Use
  Company Number: PHHY2014FR025254

PATIENT
  Age: 61 Year
  Sex: Female

DRUGS (7)
  1. STALEVO [Suspect]
     Indication: PARKINSON^S DISEASE
     Dosage: 94 DF OF (200 MG/150 MG/ 37.5 MG)
     Route: 048
     Dates: end: 20131025
  2. STALEVO [Suspect]
     Dosage: 100 DF (200 MG/ 125 MG /31.25 MG)
     Route: 048
     Dates: end: 20131025
  3. CLOZAPINE [Suspect]
     Dosage: 30 DF
     Route: 048
  4. MODOPAR [Suspect]
     Indication: PARKINSON^S DISEASE
     Dosage: 120 DF
     Dates: end: 20131025
  5. CELECTOL [Suspect]
     Indication: HYPERTENSION
     Dosage: 15 DF
     Route: 048
     Dates: end: 20131025
  6. IDARAC [Suspect]
     Indication: PAIN
     Dosage: 40 DF
     Route: 048
     Dates: end: 20131025
  7. SIFROL [Suspect]
     Indication: PARKINSON^S DISEASE
     Dosage: 10 DF
     Dates: end: 20131028

REACTIONS (2)
  - Toxicity to various agents [Recovered/Resolved]
  - Coma [Recovered/Resolved]
